FAERS Safety Report 12853470 (Version 1)
Quarter: 2016Q4

REPORT INFORMATION
  Report Type: Other
  Country: IT (occurrence: IT)
  Receive Date: 20161017
  Receipt Date: 20161017
  Transmission Date: 20170207
  Serious: Yes (Other)
  Sender: FDA-Public Use
  Company Number: IT-APOTEX-2016AP012947

PATIENT
  Age: 34 Year
  Sex: Female

DRUGS (2)
  1. TOPIRAMATO DOC GENERICI COMPRESSE RIVESTITE CON FILM [Suspect]
     Active Substance: TOPIRAMATE
     Indication: HEADACHE
     Dosage: 50 MG, DAILY
     Route: 048
     Dates: start: 20160930, end: 20161002
  2. LAROXYL [Concomitant]
     Active Substance: AMITRIPTYLINE
     Indication: HEADACHE
     Dosage: 40MG/ML
     Route: 048

REACTIONS (2)
  - Visual acuity reduced [Unknown]
  - Vision blurred [Unknown]

NARRATIVE: CASE EVENT DATE: 20161001
